FAERS Safety Report 11626333 (Version 1)
Quarter: 2015Q4

REPORT INFORMATION
  Report Type: Spontaneous
  Country: US (occurrence: US)
  Receive Date: 20151013
  Receipt Date: 20151013
  Transmission Date: 20160304
  Serious: No
  Sender: FDA-Public Use
  Company Number: US-ROCHE-1454867

PATIENT
  Sex: Male

DRUGS (2)
  1. ALLOPURINOL. [Concomitant]
     Active Substance: ALLOPURINOL
     Route: 065
  2. NAPROSYN [Suspect]
     Active Substance: NAPROXEN
     Indication: PAIN
     Route: 065

REACTIONS (4)
  - Arthralgia [Unknown]
  - Joint stiffness [Unknown]
  - Peripheral swelling [Unknown]
  - Drug ineffective [Unknown]

NARRATIVE: CASE EVENT DATE: 2013
